FAERS Safety Report 6486898-4 (Version None)
Quarter: 2009Q4

REPORT INFORMATION
  Report Type: 
  Country: None (occurrence: None)
  Receive Date: 20091210
  Receipt Date: 20091207
  Transmission Date: 20100525
  Serious: Yes (Other)
  Sender: FDA-Public Use
  Company Number: US-TEVA-213108USA

PATIENT

DRUGS (1)
  1. METHYLPREDNISOLONE TABLET 4MG [Suspect]
     Indication: HAEMATOPOIETIC STEM CELL MOBILISATION
     Route: 042

REACTIONS (1)
  - CARDIO-RESPIRATORY ARREST [None]
